FAERS Safety Report 14307253 (Version 4)
Quarter: 2018Q3

REPORT INFORMATION
  Report Type: Spontaneous
  Country: FR (occurrence: FR)
  Receive Date: 20171220
  Receipt Date: 20180727
  Transmission Date: 20181010
  Serious: Yes (Other)
  Sender: FDA-Public Use
  Company Number: FR-MERCK KGAA-2037462

PATIENT
  Age: 38 Year
  Sex: Female

DRUGS (8)
  1. CYNOMEL [Concomitant]
     Active Substance: LIOTHYRONINE SODIUM
  2. NOVOTHYROX [Suspect]
     Active Substance: LEVOTHYROXINE SODIUM
  3. CYNOMEL [Concomitant]
     Active Substance: LIOTHYRONINE SODIUM
  4. NOVOTHYROX [Suspect]
     Active Substance: LEVOTHYROXINE SODIUM
     Indication: POST PROCEDURAL HYPOTHYROIDISM
     Dates: start: 201704
  5. NOVOTHYROX [Suspect]
     Active Substance: LEVOTHYROXINE SODIUM
     Dates: start: 20170714
  6. NOVOTHYROX [Suspect]
     Active Substance: LEVOTHYROXINE SODIUM
  7. CYNOMEL [Concomitant]
     Active Substance: LIOTHYRONINE SODIUM
  8. CYNOMEL [Concomitant]
     Active Substance: LIOTHYRONINE SODIUM

REACTIONS (49)
  - Fatigue [Recovering/Resolving]
  - Limb injury [None]
  - Eye disorder [None]
  - Headache [Recovering/Resolving]
  - Hot flush [Recovering/Resolving]
  - Irritability [Recovering/Resolving]
  - Impaired healing [None]
  - Gait disturbance [None]
  - Fear [Recovering/Resolving]
  - Hyperthyroidism [Recovering/Resolving]
  - Chest pain [Recovering/Resolving]
  - Asthenia [Recovering/Resolving]
  - Affective disorder [Recovering/Resolving]
  - Arthralgia [None]
  - Menorrhagia [None]
  - Dizziness [None]
  - Anger [None]
  - Frustration tolerance decreased [None]
  - Psychomotor hyperactivity [None]
  - Visual impairment [None]
  - Agitation [Recovering/Resolving]
  - Decreased appetite [None]
  - Apathy [Recovering/Resolving]
  - Vertigo [Recovering/Resolving]
  - Diarrhoea [Recovering/Resolving]
  - Gamma-glutamyltransferase increased [Not Recovered/Not Resolved]
  - Thyroxine free decreased [None]
  - Self esteem decreased [None]
  - Anxiety [Recovering/Resolving]
  - Hyperacusis [None]
  - Blood thyroid stimulating hormone decreased [None]
  - Muscle spasms [Recovering/Resolving]
  - Dry eye [None]
  - Vision blurred [None]
  - Insomnia [None]
  - Dysstasia [None]
  - Abdominal pain lower [None]
  - Neck pain [None]
  - Depression [Recovering/Resolving]
  - Myalgia [Recovering/Resolving]
  - Fall [None]
  - Eye pain [None]
  - Tremor [Recovering/Resolving]
  - Night sweats [None]
  - Palpitations [Recovering/Resolving]
  - Migraine [None]
  - Dyspnoea [Recovering/Resolving]
  - Weight decreased [None]
  - Nausea [None]

NARRATIVE: CASE EVENT DATE: 2017
